FAERS Safety Report 7152324-5 (Version None)
Quarter: 2010Q4

REPORT INFORMATION
  Report Type: 
  Country: None (occurrence: None)
  Receive Date: 20101209
  Receipt Date: 20101209
  Transmission Date: 20110411
  Serious: Yes (Other)
  Sender: FDA-Public Use
  Company Number: None

PATIENT
  Sex: Female
  Weight: 69.8539 kg

DRUGS (1)
  1. NITROFURANTN [Suspect]
     Indication: CYSTITIS
     Dosage: 10  2 DAILY
     Dates: start: 20101122

REACTIONS (1)
  - SYNCOPE [None]
